FAERS Safety Report 6973011-X (Version None)
Quarter: 2010Q3

REPORT INFORMATION
  Report Type: 
  Country: None (occurrence: None)
  Receive Date: 20100907
  Receipt Date: 20100901
  Transmission Date: 20110219
  Serious: Yes (Death)
  Sender: FDA-Public Use
  Company Number: 2010SP046932

PATIENT
  Age: 34 Year
  Sex: Female

DRUGS (13)
  1. DULERA TABLET [Suspect]
     Indication: ASTHMA
     Dosage: 2 DF; BID;PO
     Route: 048
     Dates: start: 20100823
  2. METOPROLOL TARTRATE [Concomitant]
  3. SPIRONOLACTONE [Concomitant]
  4. LISINOPRIL [Concomitant]
  5. ASPIRIN [Concomitant]
  6. OMEPRAZOLE [Concomitant]
  7. TESSALON [Concomitant]
  8. SINGULAIR [Suspect]
  9. SPIRIVA [Suspect]
  10. ASTELIN [Concomitant]
  11. XYZAL [Suspect]
  12. VERAMYST [Suspect]
  13. PROAIR HFA [Suspect]

REACTIONS (1)
  - ASTHMA [None]
